FAERS Safety Report 6699881-0 (Version None)
Quarter: 2010Q2

REPORT INFORMATION
  Report Type: 
  Country: None (occurrence: None)
  Receive Date: 20100428
  Receipt Date: 20100420
  Transmission Date: 20101027
  Serious: Yes (Hospitalization, Disabling, Other)
  Sender: FDA-Public Use
  Company Number: US-NAPPMUNDI-USA-2010-0043391

PATIENT
  Sex: Male

DRUGS (1)
  1. OXYCONTIN [Suspect]
     Indication: PAIN
     Dosage: 80 MG, SEE TEXT
     Dates: start: 20080101

REACTIONS (9)
  - ARTHRALGIA [None]
  - BACK PAIN [None]
  - CAST APPLICATION [None]
  - DIARRHOEA [None]
  - DRUG WITHDRAWAL SYNDROME [None]
  - HIATUS HERNIA [None]
  - LUNG DISORDER [None]
  - OSTEOPOROSIS [None]
  - RHINORRHOEA [None]
